FAERS Safety Report 16348531 (Version 1)
Quarter: 2019Q2

REPORT INFORMATION
  Report Type: Spontaneous
  Country: GB (occurrence: GB)
  Receive Date: 20190523
  Receipt Date: 20190523
  Transmission Date: 20190711
  Serious: Yes (Other)
  Sender: FDA-Public Use
  Company Number: PHHY2019GB116593

PATIENT
  Age: 81 Year
  Sex: Female
  Weight: 53.6 kg

DRUGS (4)
  1. ERELZI [Suspect]
     Active Substance: ETANERCEPT-SZZS
     Indication: PSORIASIS
     Dosage: 50 MG, UNK
     Route: 051
     Dates: start: 20181024, end: 20190318
  2. AMLODIPINE [Concomitant]
     Active Substance: AMLODIPINE BESYLATE
     Indication: PRODUCT USED FOR UNKNOWN INDICATION
     Dosage: UNK
     Route: 065
  3. RAMIPRIL. [Concomitant]
     Active Substance: RAMIPRIL
     Indication: PRODUCT USED FOR UNKNOWN INDICATION
     Dosage: UNK
     Route: 065
  4. THYROXINE [Concomitant]
     Active Substance: LEVOTHYROXINE
     Indication: PRODUCT USED FOR UNKNOWN INDICATION
     Dosage: UNK
     Route: 065

REACTIONS (5)
  - Skin irritation [Not Recovered/Not Resolved]
  - Vomiting [Recovered/Resolved with Sequelae]
  - Rash [Unknown]
  - Abdominal pain upper [Recovered/Resolved with Sequelae]
  - Pruritus [Unknown]

NARRATIVE: CASE EVENT DATE: 20190110
